FAERS Safety Report 19466979 (Version 3)
Quarter: 2021Q3

REPORT INFORMATION
  Report Type: Report from Study
  Country: US (occurrence: US)
  Receive Date: 20210628
  Receipt Date: 20210720
  Transmission Date: 20211014
  Serious: No
  Sender: FDA-Public Use
  Company Number: US-AMGEN-USASP2021091810

PATIENT
  Age: 79 Year
  Sex: Male
  Weight: 102.49 kg

DRUGS (1)
  1. NEULASTA [Suspect]
     Active Substance: PEGFILGRASTIM
     Indication: NEUTROPENIA
     Dosage: UNK UNK, Q3WK (6 OR 60 /EVERY 21 DAYS)
     Route: 065

REACTIONS (2)
  - Device adhesion issue [Unknown]
  - Device issue [Unknown]

NARRATIVE: CASE EVENT DATE: 20210609
